FAERS Safety Report 6483490-2 (Version None)
Quarter: 2009Q4

REPORT INFORMATION
  Report Type: 
  Country: None (occurrence: None)
  Receive Date: 20091208
  Receipt Date: 20091208
  Transmission Date: 20100525
  Serious: Yes (Hospitalization)
  Sender: FDA-Public Use
  Company Number: None

PATIENT
  Age: 45 Year
  Sex: Male
  Weight: 86 kg

DRUGS (1)
  1. ROPINIROLE (REQUIP XL) [Suspect]
     Indication: PARKINSON'S DISEASE
     Dosage: 12MG TID PO
     Route: 048
     Dates: start: 20091014, end: 20091109

REACTIONS (4)
  - AGGRESSION [None]
  - HALLUCINATION, VISUAL [None]
  - PHOTOPSIA [None]
  - SUICIDAL IDEATION [None]
